FAERS Safety Report 13245393 (Version 1)
Quarter: 2017Q1

REPORT INFORMATION
  Report Type: Spontaneous
  Country: US (occurrence: US)
  Receive Date: 20170217
  Receipt Date: 20170217
  Transmission Date: 20170428
  Serious: Yes (Other)
  Sender: FDA-Public Use
  Company Number: US-GLAXOSMITHKLINE-US2017022384

PATIENT
  Sex: Male

DRUGS (2)
  1. RYTHMOL SR [Suspect]
     Active Substance: PROPAFENONE HYDROCHLORIDE
     Indication: PRODUCT USED FOR UNKNOWN INDICATION
     Dosage: 225 MG, TID
     Dates: start: 201402
  2. RYTHMOL [Suspect]
     Active Substance: PROPAFENONE HYDROCHLORIDE
     Indication: PRODUCT USED FOR UNKNOWN INDICATION

REACTIONS (5)
  - Cardiac flutter [Unknown]
  - Intercepted drug prescribing error [Unknown]
  - Arrhythmia [Unknown]
  - Overdose [Unknown]
  - Drug dose omission [Unknown]
